FAERS Safety Report 7274498-8 (Version None)
Quarter: 2011Q1

REPORT INFORMATION
  Report Type: 
  Country: None (occurrence: None)
  Receive Date: 20110201
  Receipt Date: 20110201
  Transmission Date: 20110831
  Serious: Yes (Hospitalization)
  Sender: FDA-Public Use
  Company Number: None

PATIENT
  Age: 56 Year
  Sex: Male
  Weight: 108.86 kg

DRUGS (1)
  1. METHOHEXITAL [Suspect]
     Indication: SEDATION
     Dosage: 100 MG ONCE IV
     Route: 042
     Dates: start: 20101008, end: 20101008

REACTIONS (2)
  - SEDATION [None]
  - RESPIRATORY FAILURE [None]
